FAERS Safety Report 9115619 (Version 2)
Quarter: 2014Q3

REPORT INFORMATION
  Report Type: Spontaneous
  Country: US (occurrence: US)
  Receive Date: 20130225
  Receipt Date: 20140826
  Transmission Date: 20150326
  Serious: No
  Sender: FDA-Public Use
  Company Number: US-BRISTOL-MYERS SQUIBB COMPANY-16440901

PATIENT
  Age: 65 Year
  Sex: Female
  Weight: 95.24 kg

DRUGS (7)
  1. KENALOG-10 [Suspect]
     Active Substance: TRIAMCINOLONE ACETONIDE
     Indication: ARTHRITIS
     Dosage: INJECTED 3 TIMES WITH KENALOG10 ONCE INTO EACH THUMB AND THE RING FINGER RT HAND?STAR:19MAR14:80CC
     Route: 030
     Dates: start: 20120130
  2. KENALOG-10 [Suspect]
     Active Substance: TRIAMCINOLONE ACETONIDE
     Indication: TRIGGER FINGER
     Dosage: INJECTED 3 TIMES WITH KENALOG10 ONCE INTO EACH THUMB AND THE RING FINGER RT HAND?STAR:19MAR14:80CC
     Route: 030
     Dates: start: 20120130
  3. SYNTHROID [Concomitant]
     Active Substance: LEVOTHYROXINE SODIUM
  4. MULTIVITAMIN [Concomitant]
     Active Substance: VITAMINS
  5. VOLTAREN [Concomitant]
     Active Substance: DICLOFENAC SODIUM
     Route: 061
  6. BABY ASPIRIN [Suspect]
     Active Substance: ASPIRIN
  7. KENALOG-10 [Suspect]
     Active Substance: TRIAMCINOLONE ACETONIDE
     Indication: MYALGIA
     Dosage: INJECTED 3 TIMES WITH KENALOG10 ONCE INTO EACH THUMB AND THE RING FINGER RT HAND?STAR:19MAR14:80CC
     Route: 030
     Dates: start: 20120130

REACTIONS (2)
  - Vaginal haemorrhage [Unknown]
  - Influenza like illness [Unknown]

NARRATIVE: CASE EVENT DATE: 20120130
